FAERS Safety Report 13779070 (Version 2)
Quarter: 2017Q4

REPORT INFORMATION
  Report Type: Spontaneous
  Country: CA (occurrence: CA)
  Receive Date: 20170721
  Receipt Date: 20171026
  Transmission Date: 20180320
  Serious: Yes (Life-Threatening, Hospitalization, Other)
  Sender: FDA-Public Use
  Company Number: CA-BAXTER-2017BAX028181

PATIENT
  Age: 42 Year
  Sex: Female

DRUGS (11)
  1. PREDNISONE. [Suspect]
     Active Substance: PREDNISONE
     Route: 048
  2. DOCETAXEL. [Suspect]
     Active Substance: DOCETAXEL
     Indication: BREAST CANCER
     Dosage: DOSAGE FORM: SOLUTION INTRAVENOUS
     Route: 065
  3. TRASTUZUMAB. [Suspect]
     Active Substance: TRASTUZUMAB
     Route: 065
  4. HERCEPTIN [Suspect]
     Active Substance: TRASTUZUMAB
     Indication: BREAST CANCER
     Dosage: DOSAGE FORM: POWDER FOR SOLUTION INTRAVENOUS
     Route: 065
  5. PROCYTOX (CYCLOPHOSPHAMIDE) 2000MG/VIAL [Suspect]
     Active Substance: CYCLOPHOSPHAMIDE
     Indication: BREAST CANCER
     Route: 065
  6. PROCYTOX (CYCLOPHOSPHAMIDE) 2000MG/VIAL [Suspect]
     Active Substance: CYCLOPHOSPHAMIDE
     Dosage: DOSAGE FORM: NOT SPECIFIED
     Route: 065
  7. PROCYTOX CYCLOPHOSPHAMIDE TAB50MG [Suspect]
     Active Substance: CYCLOPHOSPHAMIDE
     Indication: BREAST CANCER
     Route: 065
  8. DOCETAXEL. [Suspect]
     Active Substance: DOCETAXEL
     Dosage: DOSAGE FORM: SOLUTION INTRAVENOUS
     Route: 065
  9. MYCOPHENOLATE MOFETIL. [Suspect]
     Active Substance: MYCOPHENOLATE MOFETIL
     Indication: ORGANISING PNEUMONIA
     Dosage: DOSAGE FORM: NOT SPECIFIED
     Route: 065
  10. PREDNISONE. [Suspect]
     Active Substance: PREDNISONE
     Indication: ORGANISING PNEUMONIA
     Dosage: DOSAGE FORM: NOT SPECIFIED
     Route: 065
  11. TRASTUZUMAB. [Suspect]
     Active Substance: TRASTUZUMAB
     Indication: BREAST CANCER
     Route: 065

REACTIONS (10)
  - Biopsy lung abnormal [Recovering/Resolving]
  - Hypoxia [Recovering/Resolving]
  - Product use issue [Recovering/Resolving]
  - Respiratory failure [Recovering/Resolving]
  - Multifocal micronodular pneumocyte hyperplasia [Recovering/Resolving]
  - Therapeutic response decreased [Recovering/Resolving]
  - Bronchial polyp [Recovering/Resolving]
  - Organising pneumonia [Recovering/Resolving]
  - Computerised tomogram thorax abnormal [Recovering/Resolving]
  - Pulmonary oedema [Recovering/Resolving]
